FAERS Safety Report 11742628 (Version 2)
Quarter: 2015Q4

REPORT INFORMATION
  Report Type: Spontaneous
  Country: FR (occurrence: FR)
  Receive Date: 20151116
  Receipt Date: 20151201
  Transmission Date: 20160304
  Serious: Yes (Hospitalization, Other)
  Sender: FDA-Public Use
  Company Number: FR-PFIZER INC-2015373260

PATIENT
  Age: 35 Year
  Sex: Female

DRUGS (6)
  1. MIANSERIN HYDROCHLORIDE [Suspect]
     Active Substance: MIANSERIN HYDROCHLORIDE
     Dosage: 30 MG, 2X/DAY
  2. KLIPAL CODEINE [Suspect]
     Active Substance: ACETAMINOPHEN\CODEINE PHOSPHATE
     Dosage: 600 MG/50 MG, 6 TIMES DAILY
  3. SKENAN [Suspect]
     Active Substance: MORPHINE SULFATE
     Dosage: 30 MG, 2X/DAY
  4. ACTISKENAN [Suspect]
     Active Substance: MORPHINE SULFATE
     Dosage: 10 MG, 4X/DAY
  5. LYRICA [Suspect]
     Active Substance: PREGABALIN
     Dosage: 300 MG, 2X/DAY
     Route: 048
  6. VALIUM [Suspect]
     Active Substance: DIAZEPAM
     Dosage: 10 MG, 3X/DAY

REACTIONS (15)
  - Renal impairment [Unknown]
  - Coma [Recovered/Resolved]
  - Nystagmus [Recovered/Resolved]
  - Rales [Unknown]
  - Drug abuse [Unknown]
  - Motor dysfunction [Unknown]
  - Staphylococcal infection [Recovered/Resolved]
  - Toxicity to various agents [Unknown]
  - Clonus [Unknown]
  - Dehydration [Unknown]
  - Oxygen saturation decreased [Unknown]
  - Myoclonus [Recovered/Resolved]
  - Tongue biting [Unknown]
  - Hepatocellular injury [Recovering/Resolving]
  - Tachycardia [Recovered/Resolved]

NARRATIVE: CASE EVENT DATE: 20150418
